FAERS Safety Report 14901025 (Version 1)
Quarter: 2018Q2

REPORT INFORMATION
  Report Type: Spontaneous
  Country: JP (occurrence: JP)
  Receive Date: 20180516
  Receipt Date: 20180516
  Transmission Date: 20180711
  Serious: Yes (Other)
  Sender: FDA-Public Use
  Company Number: JP-PFIZER INC-2018192468

PATIENT
  Age: 1 Year
  Sex: Male

DRUGS (3)
  1. PREDNISOLONE. [Concomitant]
     Active Substance: PREDNISOLONE
     Dosage: 2 MG/KG, DAILY
  2. CRIZOTINIB [Suspect]
     Active Substance: CRIZOTINIB
     Indication: INFLAMMATORY MYOFIBROBLASTIC TUMOUR
     Dosage: 520 MG/M2, 2X/DAY
     Route: 048
  3. CELECOXIB. [Concomitant]
     Active Substance: CELECOXIB
     Dosage: 100 MG, 2X/DAY

REACTIONS (3)
  - Neutrophil count decreased [Unknown]
  - Infected dermal cyst [Unknown]
  - Product use in unapproved indication [Unknown]
